FAERS Safety Report 7920679-7 (Version None)
Quarter: 2011Q4

REPORT INFORMATION
  Report Type: 
  Country: None (occurrence: None)
  Receive Date: 20111117
  Receipt Date: 20111114
  Transmission Date: 20120403
  Serious: Yes (Other)
  Sender: FDA-Public Use
  Company Number: US-SANOFI-AVENTIS-2011SA062702

PATIENT
  Age: 58 Year
  Sex: Female

DRUGS (6)
  1. MULTAQ [Suspect]
     Indication: ATRIAL FIBRILLATION
     Route: 048
     Dates: start: 20110701, end: 20110910
  2. LASIX [Concomitant]
     Dates: start: 20110901
  3. DABIGATRAN ETEXILATE [Suspect]
     Indication: ATRIAL FIBRILLATION
     Route: 065
     Dates: start: 20110101, end: 20110901
  4. GLUCOPHAGE [Concomitant]
  5. LASIX [Concomitant]
  6. SIMVASTATIN [Concomitant]
     Dates: end: 20110901

REACTIONS (13)
  - HEPATITIS ACUTE [None]
  - PULMONARY TOXICITY [None]
  - ABDOMINAL PAIN [None]
  - INTERNATIONAL NORMALISED RATIO INCREASED [None]
  - PULMONARY OEDEMA [None]
  - INTRACARDIAC THROMBUS [None]
  - HEPATIC ENZYME ABNORMAL [None]
  - BLOOD CREATININE INCREASED [None]
  - CARDIAC FAILURE CONGESTIVE [None]
  - PULMONARY HYPERTENSION [None]
  - ATRIAL FIBRILLATION [None]
  - HEPATITIS [None]
  - HEPATIC FAILURE [None]
